FAERS Safety Report 9825578 (Version 3)
Quarter: 2014Q1

REPORT INFORMATION
  Report Type: Spontaneous
  Country: JP (occurrence: JP)
  Receive Date: 20140117
  Receipt Date: 20140303
  Transmission Date: 20141002
  Serious: Yes (Death)
  Sender: FDA-Public Use
  Company Number: JP-GE HEALTHCARE MEDICAL DIAGNOSTICS-MSTR-PR-1401S-0002

PATIENT
  Age: 57 Year
  Sex: Male
  Weight: 59 kg

DRUGS (5)
  1. METASTRON [Suspect]
     Indication: METASTATIC PAIN
     Route: 042
     Dates: start: 20131101, end: 20131101
  2. METASTRON [Suspect]
     Indication: THERAPEUTIC PROCEDURE
  3. ZOMETA [Concomitant]
     Dates: start: 20131028, end: 20131224
  4. NEU-UP [Concomitant]
     Dates: start: 20120904, end: 20130615
  5. POLARAMINE [Concomitant]
     Dates: start: 20120308, end: 20131228

REACTIONS (3)
  - Interstitial lung disease [Fatal]
  - Platelet count decreased [Fatal]
  - Disseminated intravascular coagulation [Fatal]
